FAERS Safety Report 9788587 (Version 1)
Quarter: 2013Q4

REPORT INFORMATION
  Report Type: Spontaneous
  Country: US (occurrence: US)
  Receive Date: 20131230
  Receipt Date: 20131230
  Transmission Date: 20140711
  Serious: Yes (Other)
  Sender: FDA-Public Use
  Company Number: US-PFIZER INC-2013371849

PATIENT
  Age: 60 Year
  Sex: Female
  Weight: 70.3 kg

DRUGS (5)
  1. GABAPENTIN [Suspect]
     Dosage: 300 MG, 6X/DAY
  2. LORTAB [Concomitant]
     Indication: BACK DISORDER
     Dosage: 500 MG, UNK
  3. CLONAZEPAM [Concomitant]
     Indication: PANIC ATTACK
     Dosage: 1 MG, DAILY
  4. ELAVIL [Concomitant]
     Indication: SLEEP DISORDER
     Dosage: 25 MG, DAILY
  5. SOMA [Concomitant]
     Indication: MUSCLE RELAXANT THERAPY
     Dosage: 350 MG, 3X/DAY

REACTIONS (3)
  - Sciatic nerve injury [Unknown]
  - Ligament sprain [Unknown]
  - Drug ineffective [Unknown]
